FAERS Safety Report 13523173 (Version 1)
Quarter: 2017Q2

REPORT INFORMATION
  Report Type: Spontaneous
  Country: US (occurrence: US)
  Receive Date: 20170508
  Receipt Date: 20170508
  Transmission Date: 20170830
  Serious: No
  Sender: FDA-Public Use
  Company Number: US-BAYER-2017-085489

PATIENT
  Age: 7 Year
  Sex: Male
  Weight: 20 kg

DRUGS (4)
  1. CLARITIN [Suspect]
     Active Substance: LORATADINE
     Indication: SEASONAL ALLERGY
     Dosage: UNK, QD
     Route: 048
     Dates: start: 20170501
  2. CLARITIN [Suspect]
     Active Substance: LORATADINE
     Indication: HYPERSENSITIVITY
     Dosage: 4 DF, UNK
     Route: 048
     Dates: start: 20170504, end: 20170504
  3. EYE DROPS [Concomitant]
     Active Substance: UNSPECIFIED INGREDIENT
  4. ALBUTEROL. [Concomitant]
     Active Substance: ALBUTEROL
     Dosage: UNK UNK, PRN

REACTIONS (3)
  - Abdominal pain upper [Unknown]
  - Extra dose administered [Recovered/Resolved]
  - Malaise [None]

NARRATIVE: CASE EVENT DATE: 20170504
